FAERS Safety Report 5238099-5 (Version None)
Quarter: 2007Q1

REPORT INFORMATION
  Report Type: 
  Country: None (occurrence: None)
  Receive Date: 20070215
  Receipt Date: 20070205
  Transmission Date: 20070707
  Serious: Yes (Other)
  Sender: FDA-Public Use
  Company Number: CA-JNJFOC-20070202067

PATIENT
  Age: 30 Year
  Sex: Male

DRUGS (7)
  1. LEVAQUIN [Suspect]
     Indication: DRUG USE FOR UNKNOWN INDICATION
     Route: 048
  2. RIBAVIRIN [Suspect]
     Indication: DRUG USE FOR UNKNOWN INDICATION
     Route: 042
  3. COMBIVENT [Concomitant]
     Route: 055
  4. FLOVENT [Concomitant]
     Route: 055
  5. METHYLPREDNISOLONE 16MG TAB [Concomitant]
     Route: 042
  6. NYSTATIN [Concomitant]
     Route: 065
  7. PREDNISONE [Concomitant]
     Route: 048

REACTIONS (5)
  - ALANINE AMINOTRANSFERASE INCREASED [None]
  - ASPARTATE AMINOTRANSFERASE INCREASED [None]
  - BLOOD LACTATE DEHYDROGENASE INCREASED [None]
  - HAEMOGLOBIN DECREASED [None]
  - HYPOCALCAEMIA [None]
